FAERS Safety Report 20425002 (Version 1)
Quarter: 2022Q1

REPORT INFORMATION
  Report Type: Report from Study
  Country: US (occurrence: US)
  Receive Date: 20220204
  Receipt Date: 20220204
  Transmission Date: 20220423
  Serious: No
  Sender: FDA-Public Use
  Company Number: US-EXELIXIS-CABO-20036410

PATIENT
  Age: 57 Year
  Sex: Female
  Weight: 70.975 kg

DRUGS (1)
  1. COMETRIQ [Suspect]
     Active Substance: CABOZANTINIB S-MALATE
     Indication: Thyroid cancer
     Dosage: 140 MG- (3X20 MG AND 1X80 MG)
     Route: 048
     Dates: start: 20201107

REACTIONS (5)
  - Pneumonia [Unknown]
  - Trichorrhexis [Unknown]
  - Hair texture abnormal [Unknown]
  - Dry skin [Unknown]
  - Miliaria [Unknown]

NARRATIVE: CASE EVENT DATE: 20201201
